FAERS Safety Report 6156958-6 (Version None)
Quarter: 2009Q2

REPORT INFORMATION
  Report Type: 
  Country: None (occurrence: None)
  Receive Date: 20090416
  Receipt Date: 20090409
  Transmission Date: 20091009
  Serious: Yes (Other)
  Sender: FDA-Public Use
  Company Number: B0569482A

PATIENT
  Sex: Male

DRUGS (1)
  1. REQUIP [Suspect]
     Indication: PARKINSONISM
     Dates: start: 20090317, end: 20090101

REACTIONS (10)
  - ABNORMAL SENSATION IN EYE [None]
  - ANGLE CLOSURE GLAUCOMA [None]
  - BLINDNESS [None]
  - BLINDNESS UNILATERAL [None]
  - DISCOMFORT [None]
  - INTRAOCULAR PRESSURE INCREASED [None]
  - MALAISE [None]
  - NAUSEA [None]
  - VERTIGO [None]
  - VISUAL IMPAIRMENT [None]
